FAERS Safety Report 9300211 (Version 1)
Quarter: 2012Q4

REPORT INFORMATION
  Report Type: Spontaneous
  Country: US (occurrence: None)
  Receive Date: 20121109
  Receipt Date: 20121109
  Transmission Date: 20130627
  Serious: Yes (Other)
  Sender: FDA-Public Use
  Company Number: 2012S1000123

PATIENT
  Age: 48 Year
  Sex: Male

DRUGS (3)
  1. CUBICIN [Suspect]
     Indication: STAPHYLOCOCCAL INFECTION
     Route: 042
  2. VANCOMYCIN [Concomitant]
  3. AZTREONAM [Concomitant]

REACTIONS (5)
  - Coma [None]
  - General physical health deterioration [None]
  - Transaminases increased [None]
  - Blood bilirubin increased [None]
  - Pancytopenia [None]
